FAERS Safety Report 8809313 (Version 2)
Quarter: 2012Q4

REPORT INFORMATION
  Report Type: 
  Country: US (occurrence: US)
  Receive Date: 20120926
  Receipt Date: 20121016
  Transmission Date: 20130627
  Serious: Yes (Other)
  Sender: FDA-Public Use
  Company Number: US-PFIZER INC-2012237155

PATIENT
  Age: 71 Year
  Sex: Female
  Weight: 65.76 kg

DRUGS (10)
  1. LYRICA [Suspect]
     Indication: PAIN IN EXTREMITY
     Dosage: 75 mg, 2x/day
     Route: 048
     Dates: start: 2010, end: 20120917
  2. GLIPIZIDE [Concomitant]
     Indication: DIABETES MELLITUS
     Dosage: 5 mg, 2x/day
  3. ISOSORBIDE [Concomitant]
     Dosage: 30 mg, 1x/day
  4. LOSARTAN [Concomitant]
     Dosage: 100 mg, 1x/day
  5. AMLODIPINE [Concomitant]
     Dosage: 5 mg, 2x/day
  6. METOPROLOL [Concomitant]
     Dosage: 50 mg, 2x/day
  7. DOXAZOSIN [Concomitant]
     Dosage: 8 mg, 1x/day
  8. CARVEDILOL [Concomitant]
     Dosage: 6.25 mg, 2x/day
  9. ASPIRIN [Concomitant]
     Dosage: 81 mg, 2x/day
  10. POTASSIUM [Concomitant]
     Dosage: 20 mg, 2x/day

REACTIONS (2)
  - Activities of daily living impaired [Not Recovered/Not Resolved]
  - Pain in extremity [Not Recovered/Not Resolved]
